FAERS Safety Report 8953788 (Version 1)
Quarter: 2012Q4

REPORT INFORMATION
  Report Type: 
  Country: US (occurrence: US)
  Receive Date: 20121206
  Receipt Date: 20121206
  Transmission Date: 20130627
  Serious: Yes (Other)
  Sender: FDA-Public Use
  Company Number: US-BAYER-2012-127968

PATIENT
  Age: 79 Year
  Sex: Male
  Weight: 55.79 kg

DRUGS (5)
  1. XARELTO [Suspect]
     Indication: CEREBROVASCULAR ACCIDENT PROPHYLAXIS
     Dosage: 20 mg, QD
     Route: 048
     Dates: start: 201208
  2. XARELTO [Suspect]
     Indication: ATRIAL FIBRILLATION
  3. ACETYLSALICYLIC ACID({=100 MG) [Suspect]
     Indication: DRUG USE FOR UNKNOWN INDICATION
  4. AMIODARONE [Concomitant]
     Indication: ATRIAL FIBRILLATION
     Dates: start: 2008
  5. VITAMINS NOS [Concomitant]

REACTIONS (2)
  - Haemorrhage [Unknown]
  - Body height decreased [Not Recovered/Not Resolved]
